FAERS Safety Report 24389792 (Version 3)
Quarter: 2025Q4

REPORT INFORMATION
  Report Type: Spontaneous
  Country: US (occurrence: US)
  Receive Date: 20241003
  Receipt Date: 20251209
  Transmission Date: 20260117
  Serious: Yes (Other)
  Sender: CSL BEHRING
  Company Number: US-BEH-2024178942

PATIENT
  Sex: Male

DRUGS (29)
  1. HIZENTRA [Suspect]
     Active Substance: HUMAN IMMUNOGLOBULIN G
     Indication: Immunodeficiency common variable
     Dosage: 4 G/20ML
     Route: 058
     Dates: start: 20220225
  2. HIZENTRA [Suspect]
     Active Substance: HUMAN IMMUNOGLOBULIN G
     Indication: Immunodeficiency common variable
     Dosage: 16 G, QW
     Route: 058
     Dates: start: 20241126
  3. HIZENTRA [Suspect]
     Active Substance: HUMAN IMMUNOGLOBULIN G
     Indication: Hypogammaglobulinaemia
     Dosage: 20 G, QW
     Route: 058
  4. HIZENTRA [Suspect]
     Active Substance: HUMAN IMMUNOGLOBULIN G
     Indication: Steatohepatitis
  5. AZITHROMYCIN [Concomitant]
     Active Substance: AZITHROMYCIN
  6. BENZONATATE [Concomitant]
     Active Substance: BENZONATATE
  7. DICYCLOMINE [Concomitant]
     Active Substance: DICYCLOMINE HYDROCHLORIDE
  8. ELIQUIS [Concomitant]
     Active Substance: APIXABAN
  9. ENULOSE [Concomitant]
     Active Substance: LACTULOSE
  10. GABAPENTIN [Concomitant]
     Active Substance: GABAPENTIN
  11. GLIPIZIDE [Concomitant]
     Active Substance: GLIPIZIDE
  12. HYDROCHLOROTHIAZIDE [Concomitant]
     Active Substance: HYDROCHLOROTHIAZIDE
  13. HYDROCORTISONE [Concomitant]
     Active Substance: HYDROCORTISONE
  14. LIDOCAINE [Concomitant]
     Active Substance: LIDOCAINE
  15. OXYCODONE [Concomitant]
     Active Substance: OXYCODONE
  16. PANTOPRAZOLE [Concomitant]
     Active Substance: PANTOPRAZOLE
  17. Pot.chlor.ajinomot [Concomitant]
  18. ROPINIROLE [Concomitant]
     Active Substance: ROPINIROLE
  19. XIFAXAN [Concomitant]
     Active Substance: RIFAXIMIN
  20. LOSARTAN POTASSIUM [Concomitant]
     Active Substance: LOSARTAN POTASSIUM
  21. EZETIMIBE [Concomitant]
     Active Substance: EZETIMIBE
  22. CLOTRIMAZOLE [Concomitant]
     Active Substance: CLOTRIMAZOLE
     Dosage: 10 MG
  23. HYOSCYAMINE [Concomitant]
     Active Substance: HYOSCYAMINE
     Dosage: 0.125 MG
  24. HYDROCHLOROTHIAZIDE\LOSARTAN POTASSIUM [Concomitant]
     Active Substance: HYDROCHLOROTHIAZIDE\LOSARTAN POTASSIUM
     Dosage: 50-12.5
  25. MOUNJARO [Concomitant]
     Active Substance: TIRZEPATIDE
     Dosage: 2.5/0.5
  26. PREDNISONE [Concomitant]
     Active Substance: PREDNISONE
     Dosage: 20 MG
  27. REZDIFFRA [Concomitant]
     Active Substance: RESMETIROM
     Dosage: 100 MG
  28. SIMLANDI [Concomitant]
     Active Substance: ADALIMUMAB-RYVK
     Dosage: 40 MG/0.4ML PEN (2=2)
  29. TAMSULOSIN [Concomitant]
     Active Substance: TAMSULOSIN
     Dosage: 0.4 MG

REACTIONS (10)
  - Drug ineffective [Unknown]
  - Taste disorder [Not Recovered/Not Resolved]
  - Decreased appetite [Not Recovered/Not Resolved]
  - Pruritus [Not Recovered/Not Resolved]
  - Hypoglycaemia [Not Recovered/Not Resolved]
  - Nausea [Not Recovered/Not Resolved]
  - Loss of personal independence in daily activities [Unknown]
  - Pain [Unknown]
  - Therapy change [Unknown]
  - Off label use [Unknown]

NARRATIVE: CASE EVENT DATE: 20250101
